FAERS Safety Report 25183295 (Version 1)
Quarter: 2025Q2

REPORT INFORMATION
  Report Type: Spontaneous
  Country: US (occurrence: US)
  Receive Date: 20250410
  Receipt Date: 20250410
  Transmission Date: 20250717
  Serious: Yes (Hospitalization, Other)
  Sender: AMGEN
  Company Number: US-AMGEN-USASP2025063168

PATIENT
  Age: 24 Year
  Sex: Male

DRUGS (2)
  1. PREDNISONE [Suspect]
     Active Substance: PREDNISONE
     Indication: Product used for unknown indication
     Route: 065
  2. IRON [Concomitant]
     Active Substance: IRON

REACTIONS (5)
  - Ileus [Recovered/Resolved]
  - Intestinal ulcer [Unknown]
  - Small intestinal stenosis [Unknown]
  - Enteritis [Unknown]
  - Small intestinal obstruction [Unknown]
